FAERS Safety Report 12918402 (Version 2)
Quarter: 2016Q4

REPORT INFORMATION
  Report Type: Spontaneous
  Country: US (occurrence: US)
  Receive Date: 20161107
  Receipt Date: 20161122
  Transmission Date: 20170207
  Serious: Yes (Life-Threatening)
  Sender: FDA-Public Use
  Company Number: PHEH2016US028479

PATIENT
  Sex: Male

DRUGS (1)
  1. COSENTYX [Suspect]
     Active Substance: SECUKINUMAB
     Indication: PRODUCT USED FOR UNKNOWN INDICATION
     Dosage: UNK
     Route: 065

REACTIONS (12)
  - Malaise [Recovering/Resolving]
  - Asthenia [Recovering/Resolving]
  - Cardiac disorder [Unknown]
  - General physical condition abnormal [Unknown]
  - Frustration tolerance decreased [Unknown]
  - Dyspnoea [Recovering/Resolving]
  - Inappropriate schedule of drug administration [Unknown]
  - Fatigue [Recovering/Resolving]
  - Blood glucose increased [Unknown]
  - Platelet count decreased [Recovering/Resolving]
  - Arthritis [Recovering/Resolving]
  - Psoriasis [Recovering/Resolving]
